FAERS Safety Report 10082080 (Version 2)
Quarter: 2014Q2

REPORT INFORMATION
  Report Type: Spontaneous
  Country: FR (occurrence: FR)
  Receive Date: 20140416
  Receipt Date: 20140416
  Transmission Date: 20141212
  Serious: Yes (Other)
  Sender: FDA-Public Use
  Company Number: FR-PFIZER INC-2014100204

PATIENT
  Age: 65 Year
  Sex: Male

DRUGS (3)
  1. ZYVOXID [Suspect]
     Dosage: 600 MG, 2X/DAY
  2. ACUPAN [Concomitant]
  3. DOMPER [Concomitant]

REACTIONS (2)
  - Renal impairment [Unknown]
  - Confusional state [Unknown]
